FAERS Safety Report 9291074 (Version 1)
Quarter: 2013Q2

REPORT INFORMATION
  Report Type: Spontaneous
  Country: FR (occurrence: FR)
  Receive Date: 20130515
  Receipt Date: 20130515
  Transmission Date: 20140414
  Serious: Yes (Disabling)
  Sender: FDA-Public Use
  Company Number: FR-ASTRAZENECA-2013SE31696

PATIENT
  Age: 870 Month
  Sex: Female

DRUGS (3)
  1. ARIMIDEX [Suspect]
     Indication: BREAST CANCER
     Route: 048
  2. FEMARA [Suspect]
     Indication: BREAST CANCER
     Route: 048
  3. HYALURONIC ACID (SURGIDERM P30) [Suspect]
     Route: 058
     Dates: start: 201102

REACTIONS (1)
  - Granuloma skin [Not Recovered/Not Resolved]
